FAERS Safety Report 8487357-X (Version None)
Quarter: 2012Q2

REPORT INFORMATION
  Report Type: 
  Country: None (occurrence: None)
  Receive Date: 20120628
  Receipt Date: 20120628
  Transmission Date: 20120825
  Serious: No
  Sender: FDA-Public Use
  Company Number: None

PATIENT
  Age: 23 Month
  Sex: Female
  Weight: 12.8 kg

DRUGS (1)
  1. MIDAZOLAM [Suspect]
     Dosage: 5MG ONE TIME PO : 2MG ONE TIME PO  2 DOSES 40 MIN INTERVAL
     Route: 048
     Dates: start: 20120626, end: 20120626

REACTIONS (1)
  - URTICARIA [None]
